FAERS Safety Report 10247901 (Version 3)
Quarter: 2015Q2

REPORT INFORMATION
  Report Type: Spontaneous
  Country: US (occurrence: US)
  Receive Date: 20140619
  Receipt Date: 20150528
  Transmission Date: 20150821
  Serious: Yes (Death, Life-Threatening, Hospitalization, Other)
  Sender: FDA-Public Use
  Company Number: US-MERCK-1406USA009620

PATIENT
  Sex: Female
  Weight: 86.17 kg

DRUGS (2)
  1. JANUVIA [Suspect]
     Active Substance: SITAGLIPTIN PHOSPHATE
     Dosage: 100 MG, QD
     Route: 048
     Dates: start: 20110210, end: 20110731
  2. JANUVIA [Suspect]
     Active Substance: SITAGLIPTIN PHOSPHATE
     Indication: TYPE 2 DIABETES MELLITUS
     Dosage: 50 MG, QD
     Route: 048
     Dates: start: 20090831, end: 20111006

REACTIONS (3)
  - Pancreatic carcinoma [Fatal]
  - Stent placement [Unknown]
  - Pancreaticoduodenectomy [Unknown]

NARRATIVE: CASE EVENT DATE: 201107
